FAERS Safety Report 15781985 (Version 3)
Quarter: 2019Q3

REPORT INFORMATION
  Report Type: Spontaneous
  Country: US (occurrence: US)
  Receive Date: 20190102
  Receipt Date: 20190910
  Transmission Date: 20191004
  Serious: No
  Sender: FDA-Public Use
  Company Number: US-PFIZER INC-2018535976

PATIENT
  Sex: Male
  Weight: 100 kg

DRUGS (1)
  1. GABAPENTIN. [Suspect]
     Active Substance: GABAPENTIN
     Dosage: UNK (2 OR 3 TIMES A DAY)
     Route: 048

REACTIONS (1)
  - Drug ineffective [Unknown]
